FAERS Safety Report 7127874-8 (Version None)
Quarter: 2010Q4

REPORT INFORMATION
  Report Type: 
  Country: None (occurrence: None)
  Receive Date: 20101029
  Receipt Date: 20100830
  Transmission Date: 20110411
  Serious: No
  Sender: FDA-Public Use
  Company Number: DE-003556

PATIENT
  Sex: Male

DRUGS (2)
  1. FIRMAGON [Suspect]
     Indication: PROSTATE CANCER
     Dosage: (SUBCUTANEOUS)
     Route: 058
     Dates: start: 20100218, end: 20100803
  2. ASS [Concomitant]

REACTIONS (1)
  - INJECTION SITE EXTRAVASATION [None]
